FAERS Safety Report 16405190 (Version 1)
Quarter: 2019Q2

REPORT INFORMATION
  Report Type: Report from Study
  Country: US (occurrence: US)
  Receive Date: 20190607
  Receipt Date: 20190607
  Transmission Date: 20190711
  Serious: No
  Sender: FDA-Public Use
  Company Number: US-THERATECHNOLOGIES, INC.-TH-2019-00080

PATIENT

DRUGS (2)
  1. EGRIFTA [Suspect]
     Active Substance: TESAMORELIN
     Dosage: 2 MG MILLIGRAM(S), QD
     Route: 058
     Dates: start: 20180907
  2. PEN                                /00000906/ [Concomitant]
     Dosage: UNK, BID

REACTIONS (1)
  - Product dose omission [Not Recovered/Not Resolved]
